FAERS Safety Report 17517287 (Version 2)
Quarter: 2020Q1

REPORT INFORMATION
  Report Type: Spontaneous
  Country: US (occurrence: US)
  Receive Date: 20200309
  Receipt Date: 20200312
  Transmission Date: 20200409
  Serious: Yes (Other)
  Sender: FDA-Public Use
  Company Number: US-PFIZER INC-2020090704

PATIENT
  Age: 77 Year
  Sex: Female
  Weight: 45.36 kg

DRUGS (1)
  1. ROBITUSSIN MAXIMUM STRENGTH NIGHTTIME COUGH DM [Suspect]
     Active Substance: DEXTROMETHORPHAN HYDROBROMIDE\DOXYLAMINE SUCCINATE
     Indication: NASOPHARYNGITIS
     Dosage: 2 TABLESPOON
     Dates: start: 20200224, end: 20200227

REACTIONS (8)
  - Labelled drug-food interaction medication error [Unknown]
  - Hypertension [Unknown]
  - Cough [Unknown]
  - Loss of consciousness [Unknown]
  - Sneezing [Unknown]
  - Nasal congestion [Recovering/Resolving]
  - Intentional product misuse [Unknown]
  - Middle insomnia [Unknown]

NARRATIVE: CASE EVENT DATE: 20200224
